FAERS Safety Report 8962477 (Version 1)
Quarter: 2012Q4

REPORT INFORMATION
  Report Type: 
  Country: DE (occurrence: DE)
  Receive Date: 20121213
  Receipt Date: 20121213
  Transmission Date: 20130627
  Serious: Yes (Other)
  Sender: FDA-Public Use
  Company Number: DE-BRISTOL-MYERS SQUIBB COMPANY-17051764

PATIENT
  Age: 64 Year
  Sex: Male
  Weight: 86 kg

DRUGS (1)
  1. KARVEA [Suspect]
     Indication: HYPERTENSION
     Dosage: Batch#:OT00042(658)Unsure of 1digit.
75mg Tab:Half tab/q3d
150mg Tab:Quarter of every tab.
     Route: 048
     Dates: start: 201204

REACTIONS (2)
  - Dizziness [Recovered/Resolved]
  - Tinnitus [Recovered/Resolved]
